FAERS Safety Report 10237043 (Version 1)
Quarter: 2014Q2

REPORT INFORMATION
  Report Type: Spontaneous
  Country: TW (occurrence: TW)
  Receive Date: 20140613
  Receipt Date: 20140613
  Transmission Date: 20141212
  Serious: Yes (Other)
  Sender: FDA-Public Use
  Company Number: TW-ASTRAZENECA-2014SE39545

PATIENT
  Age: 37 Year
  Sex: Female

DRUGS (5)
  1. ZOLADEX [Suspect]
     Indication: INVASIVE DUCTAL BREAST CARCINOMA
     Route: 058
  2. TAMOXIFEN [Suspect]
     Indication: INVASIVE DUCTAL BREAST CARCINOMA
     Route: 048
  3. EPIRUBICIN [Suspect]
     Indication: INVASIVE DUCTAL BREAST CARCINOMA
  4. ENDOXAN SIC [Suspect]
     Indication: INVASIVE DUCTAL BREAST CARCINOMA
  5. TAXOTERE [Suspect]
     Indication: INVASIVE DUCTAL BREAST CARCINOMA

REACTIONS (2)
  - Osteonecrosis [Recovered/Resolved]
  - Osteomyelitis [Recovered/Resolved]
